FAERS Safety Report 25664332 (Version 1)
Quarter: 2025Q3

REPORT INFORMATION
  Report Type: Spontaneous
  Country: US (occurrence: US)
  Receive Date: 20250811
  Receipt Date: 20250811
  Transmission Date: 20251021
  Serious: No
  Sender: PFIZER
  Company Number: US-PFIZER INC-202500159937

PATIENT
  Age: 69 Year
  Sex: Male
  Weight: 67.13 kg

DRUGS (3)
  1. PAXLOVID [Suspect]
     Active Substance: NIRMATRELVIR\RITONAVIR
     Indication: COVID-19
     Dosage: 3 DF, 2X/DAY
     Dates: start: 202307, end: 202307
  2. PRASUGREL [Concomitant]
     Active Substance: PRASUGREL
     Indication: Cardiac disorder
     Dosage: 10 MG, 1X/DAY
  3. PRASUGREL [Concomitant]
     Active Substance: PRASUGREL
     Indication: Blood disorder

REACTIONS (1)
  - Taste disorder [Unknown]

NARRATIVE: CASE EVENT DATE: 20230701
